FAERS Safety Report 6126455-2 (Version None)
Quarter: 2009Q1

REPORT INFORMATION
  Report Type: 
  Country: None (occurrence: None)
  Receive Date: 20090320
  Receipt Date: 20090310
  Transmission Date: 20090719
  Serious: Yes (Hospitalization, Other)
  Sender: FDA-Public Use
  Company Number: US-BAXTER-2009BH001615

PATIENT
  Age: 52 Year
  Sex: Male
  Weight: 79 kg

DRUGS (9)
  1. HEPARIN SODIUM INJECTION [Suspect]
     Indication: PREOPERATIVE CARE
     Route: 058
     Dates: start: 20071116, end: 20071116
  2. HEPARIN SODIUM INJECTION [Suspect]
     Indication: PULMONARY EMBOLISM
     Route: 058
     Dates: start: 20071116, end: 20071116
  3. HEPARIN SODIUM INJECTION [Suspect]
     Route: 058
     Dates: start: 20071101, end: 20071206
  4. HEPARIN SODIUM INJECTION [Suspect]
     Route: 058
     Dates: start: 20071101, end: 20071206
  5. LOVENOX [Suspect]
     Indication: PULMONARY EMBOLISM
     Route: 065
     Dates: start: 20071101, end: 20061206
  6. LISINOPRIL [Concomitant]
     Indication: DRUG USE FOR UNKNOWN INDICATION
     Route: 065
  7. KLOR-CON [Concomitant]
     Indication: DRUG USE FOR UNKNOWN INDICATION
     Route: 065
  8. FISH OIL [Concomitant]
     Indication: DRUG USE FOR UNKNOWN INDICATION
     Route: 065
  9. COUMADIN [Concomitant]
     Indication: DRUG USE FOR UNKNOWN INDICATION
     Route: 065

REACTIONS (8)
  - DYSPHAGIA [None]
  - DYSPNOEA [None]
  - EMBOLIC STROKE [None]
  - HYPOAESTHESIA [None]
  - MUSCLE SPASMS [None]
  - MUSCULAR WEAKNESS [None]
  - PAIN [None]
  - PULMONARY EMBOLISM [None]
